FAERS Safety Report 14383063 (Version 2)
Quarter: 2018Q1

REPORT INFORMATION
  Report Type: Spontaneous
  Country: NL (occurrence: NL)
  Receive Date: 20180114
  Receipt Date: 20180118
  Transmission Date: 20180509
  Serious: Yes (Hospitalization)
  Sender: FDA-Public Use
  Company Number: NL-ROCHE-2052420

PATIENT
  Sex: Male

DRUGS (2)
  1. COTELLIC [Suspect]
     Active Substance: COBIMETINIB
     Indication: CENTRAL NERVOUS SYSTEM MELANOMA
     Route: 065
  2. ZELBORAF [Suspect]
     Active Substance: VEMURAFENIB
     Indication: CENTRAL NERVOUS SYSTEM MELANOMA
     Route: 065

REACTIONS (3)
  - Confusional state [Unknown]
  - Gait inability [Unknown]
  - Infection [Unknown]

NARRATIVE: CASE EVENT DATE: 201712
